FAERS Safety Report 5583788-6 (Version None)
Quarter: 2008Q1

REPORT INFORMATION
  Report Type: 
  Country: None (occurrence: None)
  Receive Date: 20080108
  Receipt Date: 20080107
  Transmission Date: 20080703
  Serious: Yes (Other)
  Sender: FDA-Public Use
  Company Number: US-BRISTOL-MYERS SQUIBB COMPANY-12640710

PATIENT
  Age: 55 Year
  Sex: Female

DRUGS (3)
  1. ESTRACE [Suspect]
     Indication: HOT FLUSH
     Dates: start: 19960101, end: 19980101
  2. PREMPRO [Suspect]
     Indication: HOT FLUSH
     Dosage: 1 DF=.625/2.5
     Dates: start: 19980101, end: 20000101
  3. MEDROXYPROGESTERONE ACETATE [Suspect]
     Indication: HOT FLUSH
     Dates: start: 19960101, end: 19980101

REACTIONS (3)
  - BREAST CANCER METASTATIC [None]
  - COLON CANCER [None]
  - OVARIAN CANCER [None]
